FAERS Safety Report 5264393-8 (Version None)
Quarter: 2007Q1

REPORT INFORMATION
  Report Type: 
  Country: None (occurrence: None)
  Receive Date: 20070309
  Receipt Date: 20070223
  Transmission Date: 20070707
  Serious: Yes (Hospitalization)
  Sender: FDA-Public Use
  Company Number: 07-000418

PATIENT
  Age: 25 Year
  Sex: Female
  Weight: 47.6 kg

DRUGS (4)
  1. LOESTRIN 24 FE [Suspect]
     Indication: MENSTRUATION IRREGULAR
     Dosage: 20/1000 UG,QD,ORAL
     Route: 048
     Dates: start: 20061101
  2. CELEXA /00582602/ (CITALOPRAM HYDROBROMIDE) [Concomitant]
  3. NORTREL /00318901/ (LEVONORGESTREL) [Concomitant]
  4. ANTIBIOTICS [Concomitant]

REACTIONS (6)
  - AMENORRHOEA [None]
  - DEHYDRATION [None]
  - DRUG ADMINISTRATION ERROR [None]
  - DRUG DISPENSING ERROR [None]
  - NAUSEA [None]
  - TONSILLITIS [None]
